FAERS Safety Report 14158429 (Version 1)
Quarter: 2017Q4

REPORT INFORMATION
  Report Type: Spontaneous
  Country: CN (occurrence: CN)
  Receive Date: 20171103
  Receipt Date: 20171103
  Transmission Date: 20180321
  Serious: Yes (Hospitalization, Other)
  Sender: FDA-Public Use
  Company Number: CN-GILEAD-2017-0302753

PATIENT
  Age: 56 Year
  Sex: Male

DRUGS (2)
  1. POTASSIUM [Concomitant]
     Active Substance: POTASSIUM
  2. ADEFOVIR DIPIVOXIL. [Suspect]
     Active Substance: ADEFOVIR DIPIVOXIL
     Indication: CHRONIC HEPATITIS B
     Route: 065

REACTIONS (10)
  - Osteomalacia [Recovered/Resolved]
  - Hypokinesia [Unknown]
  - Musculoskeletal stiffness [Recovered/Resolved]
  - Osteoporosis [Unknown]
  - Temperature intolerance [Unknown]
  - Blood alkaline phosphatase increased [Unknown]
  - Hypophosphataemia [Recovered/Resolved]
  - Back pain [Recovered/Resolved]
  - Blood potassium decreased [Unknown]
  - Hypophosphataemia [Unknown]
